FAERS Safety Report 8188142-9 (Version None)
Quarter: 2012Q1

REPORT INFORMATION
  Report Type: 
  Country: None (occurrence: None)
  Receive Date: 20120306
  Receipt Date: 20120227
  Transmission Date: 20120608
  Serious: Yes (Other)
  Sender: FDA-Public Use
  Company Number: US-BAYER-2011-049589

PATIENT
  Age: 26 Year
  Sex: Female
  Weight: 87 kg

DRUGS (6)
  1. CARISOPRODOL [Concomitant]
     Indication: MIGRAINE
     Dosage: UNK
     Route: 048
     Dates: start: 20080101
  2. PROAIR HFA [Concomitant]
     Indication: ASTHMA
     Dosage: UNK
     Dates: start: 20090401
  3. DROSPIRENONE AND ETHINYL ESTRADIOL [Suspect]
     Indication: CONTRACEPTION
     Dosage: UNK
     Route: 048
     Dates: start: 20080724, end: 20090611
  4. ZITHROMAX [Concomitant]
     Indication: BRONCHITIS
     Dosage: 250 MG, UNK
     Route: 048
     Dates: end: 20090319
  5. HYDROCODONE BITARTRATE AND ACETAMINOPHEN [Concomitant]
     Indication: MIGRAINE
     Dosage: UNK
     Route: 048
     Dates: start: 20081209
  6. TUSSIONEX [Concomitant]
     Indication: COUGH
     Dosage: 1 TEASPOON AT BEDTIME
     Route: 048
     Dates: start: 20090319

REACTIONS (9)
  - PAIN [None]
  - FEAR [None]
  - PAIN IN EXTREMITY [None]
  - INJURY [None]
  - GENERAL PHYSICAL HEALTH DETERIORATION [None]
  - EMOTIONAL DISTRESS [None]
  - THROMBOPHLEBITIS SUPERFICIAL [None]
  - OEDEMA PERIPHERAL [None]
  - ANXIETY [None]
